FAERS Safety Report 13648958 (Version 7)
Quarter: 2018Q1

REPORT INFORMATION
  Report Type: Report from Study
  Country: US (occurrence: US)
  Receive Date: 20170613
  Receipt Date: 20180122
  Transmission Date: 20180508
  Serious: Yes (Death, Hospitalization, Other)
  Sender: FDA-Public Use
  Company Number: US-ACTELION-A-NJ2017-155141

PATIENT
  Age: 51 Year
  Sex: Male
  Weight: 92.63 kg

DRUGS (4)
  1. OPSUMIT [Suspect]
     Active Substance: MACITENTAN
     Dosage: 10 MG, QD
     Route: 048
     Dates: start: 20160901, end: 201610
  2. VELETRI [Suspect]
     Active Substance: EPOPROSTENOL
     Indication: PULMONARY HYPERTENSION
     Dosage: 30.55 NG/KG, PER MIN
     Route: 042
     Dates: start: 201501
  3. OPSUMIT [Suspect]
     Active Substance: MACITENTAN
     Indication: PULMONARY HYPERTENSION
     Dosage: 10 MG, QD
     Route: 048
     Dates: start: 20170607, end: 20171202
  4. OXYGEN. [Concomitant]
     Active Substance: OXYGEN

REACTIONS (12)
  - Pleural effusion [Unknown]
  - Headache [Not Recovered/Not Resolved]
  - Fluid retention [Unknown]
  - Thoracic haemorrhage [Fatal]
  - Dyspnoea [Unknown]
  - Oesophageal haemorrhage [Unknown]
  - Haemothorax [Unknown]
  - Liver transplant [Unknown]
  - Post procedural complication [Unknown]
  - Pain in jaw [Not Recovered/Not Resolved]
  - Gastric ulcer haemorrhage [Unknown]
  - Joint swelling [Not Recovered/Not Resolved]
